FAERS Safety Report 6140920-3 (Version None)
Quarter: 2009Q2

REPORT INFORMATION
  Report Type: 
  Country: None (occurrence: None)
  Receive Date: 20090402
  Receipt Date: 20090327
  Transmission Date: 20091009
  Serious: Yes (Other)
  Sender: FDA-Public Use
  Company Number: JP-ASTRAZENECA-2009AP02315

PATIENT
  Age: 69 Year
  Sex: Female
  Weight: 43 kg

DRUGS (5)
  1. IRESSA [Suspect]
     Indication: LUNG ADENOCARCINOMA
     Route: 048
     Dates: start: 20090106, end: 20090216
  2. MAGMITT [Concomitant]
     Indication: CONSTIPATION
     Route: 048
     Dates: start: 20081024
  3. SENNOSIDE [Concomitant]
     Indication: CONSTIPATION
     Route: 048
     Dates: start: 20081024
  4. MUCOSTA [Concomitant]
     Indication: GASTRITIS
     Route: 048
     Dates: start: 20090106, end: 20090216
  5. GASTER D [Concomitant]
     Indication: GASTRITIS
     Route: 048
     Dates: start: 20090119, end: 20090216

REACTIONS (1)
  - HEPATIC FUNCTION ABNORMAL [None]
